FAERS Safety Report 8463974-8 (Version None)
Quarter: 2012Q2

REPORT INFORMATION
  Report Type: 
  Country: None (occurrence: None)
  Receive Date: 20120625
  Receipt Date: 20120620
  Transmission Date: 20120825
  Serious: Yes (Life-Threatening, Hospitalization)
  Sender: FDA-Public Use
  Company Number: PH-JNJFOC-20120210856

PATIENT
  Sex: Female
  Weight: 90.6 kg

DRUGS (9)
  1. ALPRAZOLAM [Concomitant]
     Indication: ANXIETY
     Dates: start: 20110831
  2. FLUOXETINE [Concomitant]
     Indication: ANXIETY
     Dates: start: 20111126, end: 20111221
  3. LEXOTAN [Concomitant]
     Indication: SLEEP DISORDER
     Dates: start: 20091203
  4. PALIPERIDONE [Suspect]
     Indication: SCHIZOPHRENIA
     Route: 030
     Dates: start: 20120116
  5. LAMICTAL [Concomitant]
     Indication: DRUG THERAPY
     Dates: start: 20091005
  6. ALPRAZOLAM [Concomitant]
     Indication: ANXIETY
     Dates: start: 20111126
  7. PALIPERIDONE [Suspect]
     Route: 030
     Dates: start: 20110831
  8. ABILIFY [Concomitant]
     Indication: PARANOIA
     Dates: start: 20091005
  9. LEXOTAN [Concomitant]
     Indication: AGITATION
     Dates: start: 20091203

REACTIONS (1)
  - SUICIDAL BEHAVIOUR [None]
